FAERS Safety Report 6471571-9 (Version None)
Quarter: 2009Q4

REPORT INFORMATION
  Report Type: 
  Country: None (occurrence: None)
  Receive Date: 20091203
  Receipt Date: 20091125
  Transmission Date: 20100525
  Serious: Yes (Life-Threatening, Hospitalization, Other)
  Sender: FDA-Public Use
  Company Number: GB-TEVA-216298ISR

PATIENT
  Age: 67 Year
  Sex: Female

DRUGS (5)
  1. RISPERIDONE [Suspect]
  2. RISPERIDONE [Suspect]
     Indication: SCHIZOPHRENIA, PARANOID TYPE
     Route: 030
     Dates: start: 20030101
  3. RISPERIDONE [Suspect]
     Route: 030
  4. RISPERIDONE [Suspect]
     Route: 030
  5. RISPERIDONE [Suspect]
     Route: 030

REACTIONS (4)
  - DRUG INEFFECTIVE [None]
  - GASTROINTESTINAL CARCINOMA [None]
  - METASTASES TO LIVER [None]
  - OVERDOSE [None]
